FAERS Safety Report 23030926 (Version 2)
Quarter: 2024Q1

REPORT INFORMATION
  Report Type: Spontaneous
  Country: US (occurrence: US)
  Receive Date: 20231005
  Receipt Date: 20240307
  Transmission Date: 20240409
  Serious: No
  Sender: FDA-Public Use
  Company Number: US-SA-SAC20230929001500

PATIENT
  Age: 60 Year
  Sex: Male

DRUGS (1)
  1. DUPIXENT [Suspect]
     Active Substance: DUPILUMAB
     Indication: Neurodermatitis
     Dosage: 300 MG, QOW
     Route: 058
     Dates: start: 20230706

REACTIONS (4)
  - Sleep disorder due to a general medical condition [Not Recovered/Not Resolved]
  - Rash [Unknown]
  - Discomfort [Unknown]
  - Symptom recurrence [Unknown]

NARRATIVE: CASE EVENT DATE: 20230101
